FAERS Safety Report 25419893 (Version 2)
Quarter: 2025Q4

REPORT INFORMATION
  Report Type: Spontaneous
  Country: US (occurrence: US)
  Receive Date: 20250610
  Receipt Date: 20251210
  Transmission Date: 20260118
  Serious: No
  Sender: SANOFI AVENTIS
  Company Number: US-SA-2025SA162682

PATIENT
  Age: 7 Year
  Sex: Male

DRUGS (2)
  1. DUPIXENT [Suspect]
     Active Substance: DUPILUMAB
     Indication: Dermatitis atopic
     Dosage: 400 MG, 1X
     Route: 058
     Dates: start: 20250128, end: 20250128
  2. DUPIXENT [Suspect]
     Active Substance: DUPILUMAB
     Dosage: 200 MG, QOW
     Route: 058
     Dates: start: 202502

REACTIONS (5)
  - Nasopharyngitis [Recovered/Resolved]
  - Secretion discharge [Recovered/Resolved]
  - Condition aggravated [Recovered/Resolved]
  - Injection site urticaria [Recovered/Resolved]
  - Eczema [Recovered/Resolved]

NARRATIVE: CASE EVENT DATE: 20250101
